FAERS Safety Report 24736973 (Version 1)
Quarter: 2024Q4

REPORT INFORMATION
  Report Type: Spontaneous
  Country: US (occurrence: None)
  Receive Date: 20241213
  Receipt Date: 20241213
  Transmission Date: 20250115
  Serious: Yes (Death)
  Sender: Public
  Company Number: None

PATIENT
  Age: 80 Year
  Sex: Female

DRUGS (8)
  1. ERLOTINIB [Suspect]
     Active Substance: ERLOTINIB
     Indication: Non-small cell lung cancer
     Dosage: 125 MG DAILY ORAL?
     Route: 048
     Dates: start: 20221209, end: 20241124
  2. ERLOTINIB [Suspect]
     Active Substance: ERLOTINIB
     Indication: Non-small cell lung cancer
     Dosage: 125 MG DAILY ORAL?
     Route: 048
     Dates: start: 20221209, end: 20241124
  3. lmodium 2mg Capsules [Concomitant]
  4. Zometa 4mg/100ml injection [Concomitant]
  5. Advil 200mg Capsules [Concomitant]
  6. Female Multivitamin 50+ [Concomitant]
  7. VITAMIN C [Concomitant]
     Active Substance: ASCORBIC ACID
  8. MONTELUKAST [Concomitant]
     Active Substance: MONTELUKAST SODIUM

REACTIONS (1)
  - Death [None]

NARRATIVE: CASE EVENT DATE: 20241124
